FAERS Safety Report 12161563 (Version 1)
Quarter: 2016Q1

REPORT INFORMATION
  Report Type: Report from Study
  Country: US (occurrence: US)
  Receive Date: 20160309
  Receipt Date: 20160309
  Transmission Date: 20160526
  Serious: Yes (Hospitalization, Other)
  Sender: FDA-Public Use
  Company Number: US-ROCHE-1717326

PATIENT
  Sex: Male

DRUGS (7)
  1. NUTROPIN AQ [Suspect]
     Active Substance: SOMATROPIN
     Dosage: NUTROPIN AQ NUSPIN 10 MG/2 ML (5 MG/ML).
     Route: 058
     Dates: start: 20150804
  2. ATROVENT HFA [Concomitant]
     Active Substance: IPRATROPIUM BROMIDE
     Dosage: 2 PUFFS
     Route: 055
     Dates: start: 20150518
  3. BUDESONIDE. [Concomitant]
     Active Substance: BUDESONIDE
     Dosage: 0.5 MG/2 ML SUSPENSION FOR NEBULIZATION
     Route: 065
     Dates: start: 20141016
  4. PROAIR HFA [Concomitant]
     Active Substance: ALBUTEROL SULFATE
     Dosage: 90 MCG/ACTUATION AEROSOL INHALER INHALE 2 PUFFS EVERY 4-6 HOURS.
     Route: 055
     Dates: start: 20150812
  5. QVAR [Concomitant]
     Active Substance: BECLOMETHASONE DIPROPIONATE
     Dosage: 80 MCG/ACTUATION METERED AEROSOL ORAL INHALER INHALE BY INHALATION ROUTE.
     Route: 065
     Dates: start: 20150518
  6. NUTROPIN AQ [Suspect]
     Active Substance: SOMATROPIN
     Indication: BODY HEIGHT BELOW NORMAL
     Route: 058
  7. PULMICORT TURBUHALER [Concomitant]
     Active Substance: BUDESONIDE

REACTIONS (15)
  - Pyrexia [Unknown]
  - Bronchial hyperreactivity [Unknown]
  - Aspiration [Unknown]
  - Acute prerenal failure [Unknown]
  - Speech disorder developmental [Unknown]
  - Asthma [Unknown]
  - Gastrooesophageal reflux disease [Unknown]
  - Intervertebral disc protrusion [Unknown]
  - Feeding disorder [Unknown]
  - Bone development abnormal [Unknown]
  - Otitis media [Unknown]
  - Cough [Unknown]
  - Pulmonary congestion [Unknown]
  - Deafness bilateral [Unknown]
  - Cerumen impaction [Unknown]
